FAERS Safety Report 5161262-9 (Version None)
Quarter: 2006Q4

REPORT INFORMATION
  Report Type: 
  Country: None (occurrence: None)
  Receive Date: 20061130
  Receipt Date: 20060922
  Transmission Date: 20070319
  Serious: No
  Sender: FDA-Public Use
  Company Number: US-BRISTOL-MYERS SQUIBB COMPANY-13519160

PATIENT
  Age: 84 Year
  Sex: Female

DRUGS (2)
  1. ERBITUX [Suspect]
     Indication: SQUAMOUS CELL CARCINOMA
  2. RADIATION THERAPY [Suspect]
     Indication: SQUAMOUS CELL CARCINOMA

REACTIONS (1)
  - SKIN ULCER [None]
